FAERS Safety Report 16512059 (Version 1)
Quarter: 2019Q3

REPORT INFORMATION
  Report Type: Spontaneous
  Country: US (occurrence: US)
  Receive Date: 20190522
  Receipt Date: 20190522
  Transmission Date: 20191004
  Serious: No
  Sender: FDA-Public Use
  Company Number: None

PATIENT
  Age: 15 Year
  Sex: Female

DRUGS (3)
  1. LOESTRIN NOS [Concomitant]
     Active Substance: ETHINYL ESTRADIOL\NORETHINDRONE ACETATE
  2. LEXAPRO [Concomitant]
     Active Substance: ESCITALOPRAM OXALATE
  3. REMICADE [Suspect]
     Active Substance: INFLIXIMAB
     Indication: PROCTITIS ULCERATIVE
     Dates: start: 20190513, end: 20190513

REACTIONS (2)
  - Flushing [None]
  - Lip swelling [None]

NARRATIVE: CASE EVENT DATE: 20190513
